FAERS Safety Report 8180929-1 (Version None)
Quarter: 2012Q1

REPORT INFORMATION
  Report Type: 
  Country: None (occurrence: None)
  Receive Date: 20120301
  Receipt Date: 20120301
  Transmission Date: 20120608
  Serious: Yes (Other)
  Sender: FDA-Public Use
  Company Number: None

PATIENT
  Age: 67 Year
  Sex: Female
  Weight: 67.586 kg

DRUGS (1)
  1. RECLAST [Suspect]
     Indication: OSTEOPOROSIS
     Dosage: INFUSION ONCE-YEARLY 5MG/100ML
     Dates: start: 20111103

REACTIONS (6)
  - INFLUENZA LIKE ILLNESS [None]
  - MYALGIA [None]
  - MUSCULOSKELETAL STIFFNESS [None]
  - ARTHRALGIA [None]
  - PYREXIA [None]
  - DECREASED APPETITE [None]
